FAERS Safety Report 8833154 (Version 1)
Quarter: 2012Q4

REPORT INFORMATION
  Report Type: 
  Country: CL (occurrence: CL)
  Receive Date: 20121010
  Receipt Date: 20121010
  Transmission Date: 20130627
  Serious: Yes (Hospitalization)
  Sender: FDA-Public Use
  Company Number: PHHY2012CL089131

PATIENT
  Sex: Female

DRUGS (2)
  1. LEPONEX [Suspect]
     Indication: BIPOLAR DISORDER
     Dosage: 200 mg, UNK
     Dates: start: 2007
  2. LEPONEX [Suspect]
     Dosage: 250 mg, UNK

REACTIONS (1)
  - Disorientation [Unknown]
